FAERS Safety Report 9033385 (Version 2)
Quarter: 2013Q1

REPORT INFORMATION
  Report Type: Spontaneous
  Country: US (occurrence: US)
  Receive Date: 20130128
  Receipt Date: 20130228
  Transmission Date: 20140127
  Serious: No
  Sender: FDA-Public Use
  Company Number: US-009507513-1301USA011361

PATIENT
  Sex: 0

DRUGS (1)
  1. EMEND FOR INJECTION [Suspect]
     Dosage: UNK
     Route: 042

REACTIONS (2)
  - Hypersensitivity [Unknown]
  - Dyspnoea [Unknown]
